FAERS Safety Report 10348401 (Version 1)
Quarter: 2014Q3

REPORT INFORMATION
  Report Type: Spontaneous
  Country: GB (occurrence: GB)
  Receive Date: 20140729
  Receipt Date: 20140729
  Transmission Date: 20150326
  Serious: Yes (Other)
  Sender: FDA-Public Use
  Company Number: GB-TEVA-495679ISR

PATIENT
  Age: 81 Year
  Sex: Female

DRUGS (2)
  1. DONEPEZIL [Suspect]
     Active Substance: DONEPEZIL
     Dosage: 10 MILLIGRAM DAILY; AT BEDTIME
     Route: 048
  2. IBUPROFEN. [Interacting]
     Active Substance: IBUPROFEN

REACTIONS (2)
  - Drug interaction [Recovered/Resolved]
  - Malaise [Recovered/Resolved]
